FAERS Safety Report 11958490 (Version 1)
Quarter: 2016Q1

REPORT INFORMATION
  Report Type: Report from Study
  Country: US (occurrence: US)
  Receive Date: 20160126
  Receipt Date: 20160126
  Transmission Date: 20160526
  Serious: Yes (Hospitalization)
  Sender: FDA-Public Use
  Company Number: US-ABBVIE-15K-163-1368990-00

PATIENT
  Sex: Male
  Weight: 68.55 kg

DRUGS (1)
  1. HUMIRA [Suspect]
     Active Substance: ADALIMUMAB
     Indication: COLITIS ULCERATIVE
     Route: 058
     Dates: start: 20141219, end: 20150331

REACTIONS (4)
  - Volvulus [Unknown]
  - Drug ineffective [Unknown]
  - Abscess intestinal [Unknown]
  - Rectal stenosis [Unknown]
